FAERS Safety Report 8414982-4 (Version None)
Quarter: 2012Q2

REPORT INFORMATION
  Report Type: 
  Country: None (occurrence: None)
  Receive Date: 20120530
  Receipt Date: 20120521
  Transmission Date: 20120825
  Serious: Yes (Hospitalization)
  Sender: FDA-Public Use
  Company Number: WAES 1205USA03811

PATIENT
  Age: 85 Year
  Sex: Male
  Weight: 82.1011 kg

DRUGS (15)
  1. REVLIMID [Suspect]
     Indication: MULTIPLE MYELOMA
     Dosage: 10 MG/DAILY/PO
     Route: 048
     Dates: start: 20110131, end: 20110213
  2. PROCRIT [Concomitant]
  3. ASPIRIN [Concomitant]
  4. NEURONTIN [Concomitant]
  5. ZOMETA [Concomitant]
  6. CIPROFLOXACIN [Concomitant]
  7. THIOCTIC ACID [Concomitant]
  8. DECADRON [Suspect]
     Indication: MULTIPLE MYELOMA
     Dosage: 40 MG/WKY/
     Dates: start: 20110131, end: 20110210
  9. DOXIL [Suspect]
     Indication: MULTIPLE MYELOMA
     Dosage: 8 MG
     Dates: start: 20110131, end: 20110210
  10. VELCADE [Suspect]
     Indication: MULTIPLE MYELOMA
     Dosage: 2 MG
     Dates: start: 20110131, end: 20110213
  11. SYNTHROID [Concomitant]
  12. DFLUCAN [Concomitant]
  13. CALCIUM (UNSPECIFIED) [Concomitant]
  14. LEVOXYL [Concomitant]
  15. ACYCLOVIR [Concomitant]

REACTIONS (19)
  - PANCYTOPENIA [None]
  - BRAIN NATRIURETIC PEPTIDE INCREASED [None]
  - HYPONATRAEMIA [None]
  - MITRAL VALVE CALCIFICATION [None]
  - DIABETES MELLITUS [None]
  - BLOOD UREA INCREASED [None]
  - MITRAL VALVE INCOMPETENCE [None]
  - ASTHENIA [None]
  - DEHYDRATION [None]
  - PERNICIOUS ANAEMIA [None]
  - INTERSTITIAL LUNG DISEASE [None]
  - VOMITING [None]
  - ACUTE RESPIRATORY DISTRESS SYNDROME [None]
  - HYPOTHYROIDISM [None]
  - ORAL CANDIDIASIS [None]
  - BLOOD CREATININE INCREASED [None]
  - ATRIAL FIBRILLATION [None]
  - BLOOD CHLORIDE DECREASED [None]
  - AORTIC CALCIFICATION [None]
